FAERS Safety Report 18908725 (Version 2)
Quarter: 2021Q1

REPORT INFORMATION
  Report Type: Spontaneous
  Country: US (occurrence: US)
  Receive Date: 20210218
  Receipt Date: 20210226
  Transmission Date: 20210420
  Serious: No
  Sender: FDA-Public Use
  Company Number: US-MACLEODS PHARMACEUTICALS US LTD-MAC2021030052

PATIENT

DRUGS (3)
  1. IBANDRONATE TABLET 150MG [Suspect]
     Active Substance: IBANDRONATE SODIUM
     Indication: OSTEOPOROSIS
     Dosage: 150 MILLIGRAM, TAKEN THE FIRST OF EVERY MONTH, IBANDRONATE SODIUM
     Route: 065
     Dates: start: 202004
  2. IBANDRONATE TABLET 150MG [Suspect]
     Active Substance: IBANDRONATE SODIUM
     Dosage: UNK, GTIN 00333342150530, SR# AYCV8N7832
     Route: 065
  3. AMLODIPINE [Concomitant]
     Active Substance: AMLODIPINE BESYLATE
     Indication: HYPERTENSION
     Dosage: 5 MILLIGRAM
     Route: 065

REACTIONS (1)
  - Pruritus [Not Recovered/Not Resolved]

NARRATIVE: CASE EVENT DATE: 2020
